FAERS Safety Report 13608305 (Version 1)
Quarter: 2017Q2

REPORT INFORMATION
  Report Type: Spontaneous
  Country: US (occurrence: US)
  Receive Date: 20170602
  Receipt Date: 20170602
  Transmission Date: 20170830
  Serious: No
  Sender: FDA-Public Use
  Company Number: US-PERRIGO-16US022778

PATIENT
  Sex: Female

DRUGS (1)
  1. PERMETHRIN. [Suspect]
     Active Substance: PERMETHRIN
     Indication: PRODUCT USED FOR UNKNOWN INDICATION
     Dosage: UNK, UNK
     Route: 061
     Dates: start: 201612

REACTIONS (2)
  - Skin discolouration [Unknown]
  - Chemical burn [Unknown]

NARRATIVE: CASE EVENT DATE: 201612
